FAERS Safety Report 10041044 (Version 1)
Quarter: 2014Q1

REPORT INFORMATION
  Report Type: Spontaneous
  Country: FR (occurrence: FR)
  Receive Date: 20140327
  Receipt Date: 20140327
  Transmission Date: 20141002
  Serious: Yes (Hospitalization)
  Sender: FDA-Public Use
  Company Number: FR-PFIZER INC-2014082698

PATIENT
  Age: 78 Year
  Sex: Male

DRUGS (10)
  1. NEURONTIN [Suspect]
     Dosage: UNK
     Route: 048
     Dates: end: 20140111
  2. NEURONTIN [Suspect]
     Dosage: UNK
     Dates: start: 20140123, end: 201401
  3. MECIR [Suspect]
     Dosage: UNK
     Route: 048
     Dates: end: 20140111
  4. MECIR [Suspect]
     Dosage: UNK
     Dates: start: 20140123, end: 201401
  5. HEMIGOXINE NATIVELLE [Suspect]
     Dosage: UNK
     Route: 048
     Dates: end: 20140111
  6. HEMIGOXINE NATIVELLE [Suspect]
     Dosage: UNK
     Route: 048
     Dates: start: 20140123, end: 201401
  7. PRADAXA [Suspect]
     Dosage: UNK
     Route: 048
     Dates: start: 201209, end: 20140111
  8. DEPAKOTE [Concomitant]
     Dosage: UNK
  9. MYSOLINE [Concomitant]
     Route: 048
  10. XANAX [Concomitant]
     Route: 048

REACTIONS (4)
  - Fall [Recovered/Resolved]
  - Haemorrhage [Recovered/Resolved]
  - Traumatic haematoma [Recovered/Resolved]
  - Haemoglobin decreased [Recovered/Resolved]
